FAERS Safety Report 18991022 (Version 10)
Quarter: 2021Q4

REPORT INFORMATION
  Report Type: Other
  Country: JP (occurrence: JP)
  Receive Date: 20210310
  Receipt Date: 20211207
  Transmission Date: 20220304
  Serious: Yes (Death, Hospitalization, Other)
  Sender: FDA-Public Use
  Company Number: JP-CHUGAI-A2021008397ROCHE

PATIENT
  Age: 82 Year
  Sex: Male
  Weight: 56.8 kg

DRUGS (8)
  1. ATEZOLIZUMAB [Suspect]
     Active Substance: ATEZOLIZUMAB
     Indication: Hepatocellular carcinoma
     Dosage: DOSAGE WAS UNCERTAIN.
     Route: 041
     Dates: start: 20210215, end: 20210215
  2. BEVACIZUMAB [Suspect]
     Active Substance: BEVACIZUMAB
     Indication: Hepatocellular carcinoma
     Dosage: DOSAGE WAS UNCERTAIN.
     Route: 041
     Dates: start: 20210215, end: 20210215
  3. TOLVAPTAN [Suspect]
     Active Substance: TOLVAPTAN
     Indication: Hepatocellular carcinoma
     Route: 065
  4. SAMSCA [Suspect]
     Active Substance: TOLVAPTAN
     Indication: Product used for unknown indication
     Route: 065
     Dates: start: 20210326
  5. SAMSCA [Suspect]
     Active Substance: TOLVAPTAN
     Route: 065
     Dates: start: 20210507
  6. INDAPAMIDE [Concomitant]
     Active Substance: INDAPAMIDE
     Indication: Hypertension
     Route: 048
  7. AMLODIPINE [Concomitant]
     Active Substance: AMLODIPINE BESYLATE
     Indication: Hypertension
     Route: 048
  8. SILODOSIN OD [Concomitant]
     Route: 048

REACTIONS (15)
  - Multiple organ dysfunction syndrome [Fatal]
  - Malaise [Recovered/Resolved]
  - Decreased appetite [Unknown]
  - Pyrexia [Recovered/Resolved]
  - Myocardial ischaemia [Not Recovered/Not Resolved]
  - Tumour necrosis [Unknown]
  - Renal disorder [Unknown]
  - Anaemia [Unknown]
  - Tinea pedis [Unknown]
  - Dyslipidaemia [Not Recovered/Not Resolved]
  - C-reactive protein increased [Unknown]
  - Drug eruption [Unknown]
  - Dehydration [Unknown]
  - Biliary tract disorder [Unknown]
  - Hypoalbuminaemia [Unknown]

NARRATIVE: CASE EVENT DATE: 20210216
